FAERS Safety Report 9475949 (Version 1)
Quarter: 2013Q3

REPORT INFORMATION
  Report Type: Spontaneous
  Country: US (occurrence: US)
  Receive Date: 20130826
  Receipt Date: 20130826
  Transmission Date: 20140515
  Serious: Yes (Hospitalization)
  Sender: FDA-Public Use
  Company Number: US-BAYER-2013-102584

PATIENT
  Age: 27 Year
  Sex: Female
  Weight: 59.86 kg

DRUGS (4)
  1. YAZ [Suspect]
  2. GIANVI [Suspect]
  3. EXTRA STRENGTH TYLENOL [Concomitant]
     Indication: PAIN
     Dosage: 500 MG, PRN
     Route: 048
  4. VALACICLOVIR [Concomitant]
     Dosage: 1000 MG, UNK

REACTIONS (1)
  - Pulmonary embolism [None]
